FAERS Safety Report 4706611-8 (Version None)
Quarter: 2005Q3

REPORT INFORMATION
  Report Type: 
  Country: None (occurrence: None)
  Receive Date: 20050705
  Receipt Date: 20040916
  Transmission Date: 20060218
  Serious: Yes (Hospitalization)
  Sender: FDA-Public Use
  Company Number: JP-ROCHE-380589

PATIENT
  Age: 13 Year
  Sex: Male

DRUGS (1)
  1. CELLCEPT [Suspect]
     Route: 048
     Dates: start: 20040907, end: 20040916

REACTIONS (2)
  - HEPATIC FUNCTION ABNORMAL [None]
  - THROMBOTIC MICROANGIOPATHY [None]
